FAERS Safety Report 7233024-X (Version None)
Quarter: 2011Q1

REPORT INFORMATION
  Report Type: 
  Country: None (occurrence: None)
  Receive Date: 20110119
  Receipt Date: 20110110
  Transmission Date: 20110831
  Serious: Yes (Hospitalization, Other)
  Sender: FDA-Public Use
  Company Number: PHHO2011DE00751

PATIENT

DRUGS (2)
  1. FTY 720 [Suspect]
     Dosage: 0.5 MG, QD
     Route: 048
     Dates: end: 20110107
  2. FTY 720 [Suspect]
     Indication: MULTIPLE SCLEROSIS
     Dosage: DOSE BLINDED

REACTIONS (4)
  - DIZZINESS [None]
  - VISION BLURRED [None]
  - FACIAL PARESIS [None]
  - ATAXIA [None]
